FAERS Safety Report 9526284 (Version 1)
Quarter: 2013Q3

REPORT INFORMATION
  Report Type: Spontaneous
  Country: SA (occurrence: SA)
  Receive Date: 20130916
  Receipt Date: 20130916
  Transmission Date: 20140515
  Serious: Yes (Other)
  Sender: FDA-Public Use
  Company Number: SA-JNJFOC-20130904256

PATIENT
  Age: 46 Year
  Sex: Male
  Weight: 63 kg

DRUGS (17)
  1. REMICADE [Suspect]
     Indication: COLITIS ULCERATIVE
     Dosage: 2/52 WEEK
     Route: 042
     Dates: start: 20101212
  2. REMICADE [Suspect]
     Indication: COLITIS ULCERATIVE
     Dosage: 2/52 WEEK, INFLIXIMAB 315 MG NORMAL SALINE
     Route: 042
     Dates: start: 20130722
  3. REMICADE [Suspect]
     Indication: COLITIS ULCERATIVE
     Dosage: 0/52 WEEK,
     Route: 042
     Dates: start: 20130807
  4. REMICADE [Suspect]
     Indication: COLITIS ULCERATIVE
     Dosage: 8/52 WEEK,
     Route: 042
     Dates: start: 20130303
  5. REMICADE [Suspect]
     Indication: COLITIS ULCERATIVE
     Dosage: 8/52 WEEK,
     Route: 042
     Dates: start: 20130113
  6. REMICADE [Suspect]
     Indication: COLITIS ULCERATIVE
     Dosage: 8/52 WEEK,
     Route: 042
     Dates: start: 20120610
  7. REMICADE [Suspect]
     Indication: COLITIS ULCERATIVE
     Dosage: 8/52 WEEK,
     Route: 042
     Dates: start: 20120415
  8. REMICADE [Suspect]
     Indication: COLITIS ULCERATIVE
     Dosage: 8/52 WEEK,
     Route: 042
     Dates: start: 20120219
  9. REMICADE [Suspect]
     Indication: COLITIS ULCERATIVE
     Dosage: 8/52 WEEK,
     Route: 042
     Dates: start: 20111225
  10. REMICADE [Suspect]
     Indication: COLITIS ULCERATIVE
     Dosage: 8/52 WEEK,
     Route: 042
     Dates: start: 20111030
  11. REMICADE [Suspect]
     Indication: COLITIS ULCERATIVE
     Dosage: 8/52 WEEK,
     Route: 042
     Dates: start: 20110904
  12. REMICADE [Suspect]
     Indication: COLITIS ULCERATIVE
     Dosage: 8/52 WEEK,
     Route: 042
     Dates: start: 20110710
  13. REMICADE [Suspect]
     Indication: COLITIS ULCERATIVE
     Dosage: 8/52 WEEK,
     Route: 042
     Dates: start: 20110522
  14. REMICADE [Suspect]
     Indication: COLITIS ULCERATIVE
     Dosage: 8/52 WEEK,
     Route: 042
     Dates: start: 20110327
  15. REMICADE [Suspect]
     Indication: COLITIS ULCERATIVE
     Dosage: 6/52 WEEK
     Route: 042
     Dates: start: 20110130
  16. REMICADE [Suspect]
     Indication: COLITIS ULCERATIVE
     Dosage: 8/52 WEEK,
     Route: 042
     Dates: start: 20120905
  17. REMICADE [Suspect]
     Indication: COLITIS ULCERATIVE
     Dosage: 0/52 WEEK
     Route: 042
     Dates: start: 20101205

REACTIONS (7)
  - Tachycardia [Recovered/Resolved]
  - Vomiting [Recovered/Resolved]
  - Nausea [Recovered/Resolved]
  - Epigastric discomfort [Recovered/Resolved]
  - Dyspnoea [Recovered/Resolved]
  - Infusion related reaction [Recovered/Resolved]
  - Feeling hot [Recovered/Resolved]
